FAERS Safety Report 5947964-2 (Version None)
Quarter: 2008Q4

REPORT INFORMATION
  Report Type: 
  Country: None (occurrence: None)
  Receive Date: 20081110
  Receipt Date: 20081110
  Transmission Date: 20090506
  Serious: Yes (Hospitalization)
  Sender: FDA-Public Use
  Company Number: None

PATIENT
  Age: 62 Year
  Sex: Male
  Weight: 71.1 kg

DRUGS (10)
  1. DASATINIB (BRISTOL-MYERS SQUIBB) CA-180-US [Suspect]
     Indication: GLIOBLASTOMA MULTIFORME
     Dosage: 210 MG DAILY PO
     Route: 048
     Dates: start: 20081008, end: 20081018
  2. DASATINIB (BRISTOL-MYERS SQUIBB) CA-180-US [Suspect]
     Indication: GLIOBLASTOMA MULTIFORME
     Dosage: 210 MG DAILY PO
     Route: 048
     Dates: start: 20081029, end: 20081101
  3. ERLOTINIB (GENENTECH/OSIP) [Suspect]
     Indication: GLIOBLASTOMA MULTIFORME
     Dosage: 150 MG; 100 MG DAILY PO
     Route: 048
     Dates: start: 20081008, end: 20081018
  4. ERLOTINIB (GENENTECH/OSIP) [Suspect]
     Indication: GLIOBLASTOMA MULTIFORME
     Dosage: 150 MG; 100 MG DAILY PO
     Route: 048
     Dates: start: 20081029, end: 20081101
  5. COREG [Concomitant]
  6. LIPITOR [Concomitant]
  7. LISINOPRIL [Concomitant]
  8. DONNATAL [Concomitant]
  9. DEPAKOTE [Concomitant]
  10. ZANTAC [Concomitant]

REACTIONS (12)
  - ASTHENIA [None]
  - CONVULSION [None]
  - DEHYDRATION [None]
  - DISEASE PROGRESSION [None]
  - DIZZINESS [None]
  - FALL [None]
  - HYPOTENSION [None]
  - HYPOVOLAEMIA [None]
  - PYREXIA [None]
  - RASH [None]
  - RENAL FAILURE ACUTE [None]
  - THERMAL BURN [None]
